FAERS Safety Report 5882054-9 (Version None)
Quarter: 2008Q3

REPORT INFORMATION
  Report Type: 
  Country: None (occurrence: None)
  Receive Date: 20080912
  Receipt Date: 20080721
  Transmission Date: 20090109
  Serious: No
  Sender: FDA-Public Use
  Company Number: US-ABBOTT-08P-163-0465079-00

PATIENT
  Sex: Male
  Weight: 83.082 kg

DRUGS (10)
  1. HUMIRA [Suspect]
     Indication: CROHN'S DISEASE
     Route: 058
     Dates: start: 20080601
  2. ENDOCORT [Concomitant]
     Indication: CROHN'S DISEASE
     Route: 048
     Dates: start: 20040101
  3. ESOMEPRAZOLE MAGNESIUM [Concomitant]
     Indication: GASTRIC DISORDER
     Route: 048
  4. PENTASSA [Concomitant]
     Indication: CROHN'S DISEASE
     Dosage: 500 MG, 2 TABLETS, 4 IN 1 D
     Route: 048
  5. RANITIDINE [Concomitant]
     Indication: GASTRIC DISORDER
     Route: 048
  6. AZATHIOPRINE [Concomitant]
     Indication: IMMUNOSUPPRESSANT DRUG THERAPY
     Route: 048
  7. ATORVASTATIN CALCIUM [Concomitant]
     Indication: BLOOD CHOLESTEROL
     Route: 048
  8. METOPROLOL SUCCINATE [Concomitant]
     Indication: CARDIAC DISORDER
     Route: 048
  9. NITROGLYCERIN [Concomitant]
     Indication: CHEST PAIN
  10. ACETYLSALICYLIC ACID SRT [Concomitant]
     Indication: ANTICOAGULANT THERAPY
     Route: 048

REACTIONS (2)
  - HEPATIC ENZYME INCREASED [None]
  - UNDERDOSE [None]
